FAERS Safety Report 13553318 (Version 1)
Quarter: 2017Q2

REPORT INFORMATION
  Report Type: Spontaneous
  Country: US (occurrence: US)
  Receive Date: 20170516
  Receipt Date: 20170516
  Transmission Date: 20170830
  Serious: Yes (Other)
  Sender: FDA-Public Use
  Company Number: None

PATIENT
  Age: 72 Year
  Sex: Female
  Weight: 60.75 kg

DRUGS (16)
  1. IMODIUM [Concomitant]
     Active Substance: LOPERAMIDE HYDROCHLORIDE
  2. ATORVASTATIN 10 MG [Suspect]
     Active Substance: ATORVASTATIN
     Indication: ARTERIAL OCCLUSIVE DISEASE
     Dosage: ?          QUANTITY:1 TABLET(S);?
     Route: 048
     Dates: start: 20170504, end: 20170508
  3. VITAMIN D3 [Concomitant]
     Active Substance: CHOLECALCIFEROL
  4. NASALCROM [Concomitant]
     Active Substance: CROMOLYN SODIUM
  5. CALCIUM CARBONATE. [Concomitant]
     Active Substance: CALCIUM CARBONATE
  6. CRANBERRY PO [Concomitant]
  7. FISH OIL [Concomitant]
     Active Substance: FISH OIL
  8. NYSTSTIN-TRIAMCINOLONE CREAM [Concomitant]
  9. MULTI VITAMIN [Concomitant]
     Active Substance: VITAMINS
  10. PROAIR HFA [Concomitant]
     Active Substance: ALBUTEROL SULFATE
  11. SINGULAIR [Concomitant]
     Active Substance: MONTELUKAST SODIUM
  12. FLUTICASONE. [Concomitant]
     Active Substance: FLUTICASONE
  13. MACROBID [Concomitant]
     Active Substance: NITROFURANTOIN\NITROFURANTOIN MONOHYDRATE
  14. VALTREX [Concomitant]
     Active Substance: VALACYCLOVIR HYDROCHLORIDE
  15. MAGNESIUM [Concomitant]
     Active Substance: MAGNESIUM
  16. BIOTIN [Concomitant]
     Active Substance: BIOTIN

REACTIONS (10)
  - Weight decreased [None]
  - Pyrexia [None]
  - Cystitis [None]
  - Cough [None]
  - Feeling abnormal [None]
  - Malaise [None]
  - Pain [None]
  - Hypersomnia [None]
  - Chest pain [None]
  - Bladder pain [None]

NARRATIVE: CASE EVENT DATE: 20170509
